FAERS Safety Report 7277106-5 (Version None)
Quarter: 2011Q1

REPORT INFORMATION
  Report Type: 
  Country: None (occurrence: None)
  Receive Date: 20110202
  Receipt Date: 20110202
  Transmission Date: 20110831
  Serious: Yes (Hospitalization, Disabling, Other)
  Sender: FDA-Public Use
  Company Number: None

PATIENT
  Sex: Female
  Weight: 48.9885 kg

DRUGS (1)
  1. ALPRAZOLAM [Suspect]
     Indication: ANXIETY DISORDER
     Dosage: 1 MG XANAX 4X A DAY ORAL
     Route: 048
     Dates: start: 20070710, end: 20110120

REACTIONS (4)
  - CONVERSION DISORDER [None]
  - REBOUND EFFECT [None]
  - TREMOR [None]
  - STUPOR [None]
